FAERS Safety Report 9333142 (Version 2)
Quarter: 2013Q3

REPORT INFORMATION
  Report Type: Spontaneous
  Country: CA (occurrence: CA)
  Receive Date: 20130606
  Receipt Date: 20130724
  Transmission Date: 20140515
  Serious: Yes (Death, Hospitalization, Other)
  Sender: FDA-Public Use
  Company Number: CA-BAXTER-2013BAX020193

PATIENT
  Age: 83 Year
  Sex: Female

DRUGS (2)
  1. DIANEAL PD4 SOLUTION WITH 1.5% DEXTROSE AND 2.5 MEQ/L CALCIUM [Suspect]
     Indication: PERITONEAL DIALYSIS
     Route: 033
     Dates: end: 2013
  2. DIANEAL PD 101 SOLUTION WITH 0.5% DEXTROSE [Suspect]
     Indication: PERITONEAL DIALYSIS
     Route: 033
     Dates: end: 2013

REACTIONS (10)
  - Discomfort [Recovered/Resolved]
  - Back disorder [Recovered/Resolved]
  - Back disorder [Recovered/Resolved]
  - Pulmonary oedema [Unknown]
  - Malaise [Unknown]
  - Insomnia [Unknown]
  - Hypotension [Unknown]
  - Dyspnoea [Unknown]
  - Multimorbidity [Fatal]
  - Pneumonia [Recovered/Resolved]
